FAERS Safety Report 8349004-7 (Version None)
Quarter: 2012Q2

REPORT INFORMATION
  Report Type: 
  Country: None (occurrence: None)
  Receive Date: 20120508
  Receipt Date: 20120424
  Transmission Date: 20120825
  Serious: Yes (Hospitalization)
  Sender: FDA-Public Use
  Company Number: 217327

PATIENT

DRUGS (3)
  1. ANTI-VITAMIN K (VITAMIN K ANTAGONISTS) [Suspect]
     Indication: EMBOLISM VENOUS
  2. INNOHEP [Suspect]
     Indication: EMBOLISM VENOUS
  3. HEPARIN [Suspect]
     Indication: EMBOLISM VENOUS

REACTIONS (6)
  - RESPIRATORY FAILURE [None]
  - HAEMORRHAGE [None]
  - THROMBOCYTOPENIA [None]
  - PULMONARY EMBOLISM [None]
  - LIMB AMPUTATION [None]
  - PERIPHERAL ISCHAEMIA [None]
